FAERS Safety Report 7559332-0 (Version None)
Quarter: 2011Q2

REPORT INFORMATION
  Report Type: 
  Country: None (occurrence: None)
  Receive Date: 20110617
  Receipt Date: 20110617
  Transmission Date: 20111010
  Serious: Yes (Hospitalization)
  Sender: FDA-Public Use
  Company Number: None

PATIENT
  Sex: Male
  Weight: 147.1 kg

DRUGS (17)
  1. DUCOSATE (COLACE [Concomitant]
  2. ENOXAPARIN (LOVENUX [Concomitant]
  3. CIPROFLOXACIN [Concomitant]
  4. FAMOTIDINE [Concomitant]
  5. SYNTHROID [Concomitant]
  6. METOPROLOL (TOPROL-XL [Concomitant]
  7. OXYCODONE HCL [Concomitant]
  8. HYDROCHLOROTHIAZIDE-LISINOPRIL (ZESTORETIC [Concomitant]
  9. DOXORUBICIN HCL [Suspect]
     Dosage: 100 MG
     Dates: end: 20110608
  10. BUPROPION (WELLBUTRIN XL) [Concomitant]
  11. CODEINE [Concomitant]
  12. PEPCID [Concomitant]
  13. FLUCONAZOLE [Concomitant]
  14. METFORMIN (GLUCOPHAGE XR) [Concomitant]
  15. AMITRIPTYLINE-CHLORDIAZEPOXIDE (LIMBITROL) [Concomitant]
  16. SYNTHROID [Concomitant]
  17. OXYCONTIN [Concomitant]

REACTIONS (14)
  - DEHYDRATION [None]
  - DECREASED APPETITE [None]
  - MALNUTRITION [None]
  - ASTHENIA [None]
  - BLOOD CREATININE INCREASED [None]
  - HYPERLIPIDAEMIA [None]
  - DIABETES MELLITUS INADEQUATE CONTROL [None]
  - HEPATIC FUNCTION ABNORMAL [None]
  - FATIGUE [None]
  - BLOOD UREA INCREASED [None]
  - TYPE 2 DIABETES MELLITUS [None]
  - HYPERTENSION [None]
  - NAUSEA [None]
  - WALKING AID USER [None]
